FAERS Safety Report 4998420-X (Version None)
Quarter: 2006Q2

REPORT INFORMATION
  Report Type: 
  Country: None (occurrence: None)
  Receive Date: 20060510
  Receipt Date: 20060111
  Transmission Date: 20061013
  Serious: Yes (Death)
  Sender: FDA-Public Use
  Company Number: US-GLAXOSMITHKLINE-A0589063A

PATIENT
  Age: 44 Year
  Sex: Female
  Weight: 121.8 kg

DRUGS (10)
  1. REQUIP [Suspect]
     Indication: DRUG USE FOR UNKNOWN INDICATION
     Route: 048
     Dates: start: 20050101
  2. AMITRIPTYLINE HCL [Suspect]
     Dosage: 225MG AT NIGHT
     Route: 048
     Dates: start: 20000815
  3. ELAVIL [Suspect]
     Indication: DRUG USE FOR UNKNOWN INDICATION
     Dosage: 75MG THREE TIMES PER DAY
     Route: 065
  4. PSEUDOEPHEDRINE HCL [Suspect]
     Indication: DRUG USE FOR UNKNOWN INDICATION
     Route: 065
  5. DOXYLAMINE [Suspect]
     Indication: DRUG USE FOR UNKNOWN INDICATION
     Route: 065
  6. DEXTROMETHORPHAN [Suspect]
     Indication: DRUG USE FOR UNKNOWN INDICATION
     Route: 065
  7. HYDROCODONE [Suspect]
     Indication: DRUG USE FOR UNKNOWN INDICATION
     Route: 065
  8. MORPHINE [Concomitant]
     Dosage: 60MG TWICE PER DAY
     Route: 048
     Dates: start: 20000905
  9. NORCO [Concomitant]
     Indication: BACK PAIN
     Dosage: 2TAB THREE TIMES PER DAY
     Route: 048
     Dates: start: 20000808
  10. UNIRETIC [Concomitant]
     Indication: HYPERTENSION
     Route: 048
     Dates: start: 20030503

REACTIONS (16)
  - ACUTE RESPIRATORY DISTRESS SYNDROME [None]
  - BRONCHOPNEUMONIA [None]
  - CARDIAC ARREST [None]
  - CARDIAC HYPERTROPHY [None]
  - CHOLELITHIASIS [None]
  - DIFFUSE ALVEOLAR DAMAGE [None]
  - DRUG TOXICITY [None]
  - DYSPNOEA [None]
  - MALAISE [None]
  - NEPHROSCLEROSIS [None]
  - OVARIAN CYST [None]
  - OVERDOSE [None]
  - PULMONARY CONGESTION [None]
  - PULMONARY OEDEMA [None]
  - PYELONEPHRITIS [None]
  - SUDDEN DEATH [None]
